FAERS Safety Report 19515938 (Version 1)
Quarter: 2021Q3

REPORT INFORMATION
  Report Type: Report from Study
  Country: IN (occurrence: IN)
  Receive Date: 20210709
  Receipt Date: 20210709
  Transmission Date: 20211014
  Serious: Yes (Death)
  Sender: FDA-Public Use
  Company Number: NVSC2021IN154046

PATIENT
  Age: 68 Year
  Sex: Female

DRUGS (1)
  1. TASIGNA [Suspect]
     Active Substance: NILOTINIB
     Indication: CHRONIC MYELOID LEUKAEMIA
     Dosage: 300 MG, BID
     Route: 048
     Dates: start: 20191218

REACTIONS (5)
  - Chronic myeloid leukaemia [Fatal]
  - Dyspnoea [Fatal]
  - Asthenia [Fatal]
  - Malignant neoplasm progression [Fatal]
  - Organ failure [Fatal]

NARRATIVE: CASE EVENT DATE: 20210219
